FAERS Safety Report 6604767-3 (Version None)
Quarter: 2010Q1

REPORT INFORMATION
  Report Type: 
  Country: None (occurrence: None)
  Receive Date: 20100226
  Receipt Date: 20100105
  Transmission Date: 20100710
  Serious: No
  Sender: FDA-Public Use
  Company Number: US-BRISTOL-MYERS SQUIBB COMPANY-14922611

PATIENT

DRUGS (1)
  1. ONGLYZA [Suspect]

REACTIONS (1)
  - HEADACHE [None]
